FAERS Safety Report 24103706 (Version 2)
Quarter: 2024Q3

REPORT INFORMATION
  Report Type: Spontaneous
  Country: CO (occurrence: CO)
  Receive Date: 20240717
  Receipt Date: 20240722
  Transmission Date: 20241017
  Serious: Yes (Hospitalization, Other)
  Sender: GLAXOSMITHKLINE
  Company Number: CO-GLAXOSMITHKLINE-CO2024AMR022402

PATIENT

DRUGS (2)
  1. NUCALA [Suspect]
     Active Substance: MEPOLIZUMAB
     Indication: Asthma
     Dosage: 100 MG, MO (EVERY 30 DAYS), INJECTION
     Dates: start: 20230126
  2. NUCALA [Suspect]
     Active Substance: MEPOLIZUMAB
     Dosage: 100 MG, Q4W (EVERY 28 DAYS), INJECTION

REACTIONS (11)
  - Asthma [Not Recovered/Not Resolved]
  - Oxygen saturation decreased [Not Recovered/Not Resolved]
  - Choking [Not Recovered/Not Resolved]
  - Asphyxia [Unknown]
  - Cough [Not Recovered/Not Resolved]
  - Productive cough [Recovered/Resolved]
  - Rhinorrhoea [Unknown]
  - Secretion discharge [Not Recovered/Not Resolved]
  - Dyspnoea [Unknown]
  - Dyspnoea exertional [Unknown]
  - Product use in unapproved indication [Unknown]
